FAERS Safety Report 4290407-8 (Version None)
Quarter: 2004Q1

REPORT INFORMATION
  Report Type: 
  Country: None (occurrence: None)
  Receive Date: 20040209
  Receipt Date: 20040127
  Transmission Date: 20041129
  Serious: Yes (Other)
  Sender: FDA-Public Use
  Company Number: 2004196814US

PATIENT
  Age: 87 Year
  Sex: Female

DRUGS (4)
  1. HEPARIN SODIUM INJECTION [Suspect]
     Dosage: IV
     Route: 042
  2. ASPIRIN [Suspect]
  3. CLOPIDOGREL BISULFATE [Suspect]
  4. ABCIXIMAB (ABCIXIMAB) [Suspect]

REACTIONS (4)
  - HAEMORRHAGE INTRACRANIAL [None]
  - MYOCARDIAL INFARCTION [None]
  - SUBARACHNOID HAEMORRHAGE [None]
  - THROMBOCYTOPENIA [None]
